FAERS Safety Report 9130903 (Version 3)
Quarter: 2013Q1

REPORT INFORMATION
  Report Type: Spontaneous
  Country: DE (occurrence: DE)
  Receive Date: 20130301
  Receipt Date: 20130328
  Transmission Date: 20140127
  Serious: Yes (Hospitalization)
  Sender: FDA-Public Use
  Company Number: DE-AMGEN-DEUSP2013006681

PATIENT
  Age: 35 Year
  Sex: Female
  Weight: 87 kg

DRUGS (3)
  1. XGEVA [Suspect]
     Indication: BREAST CANCER METASTATIC
     Dosage: 120 MG, Q4WK
     Route: 058
     Dates: start: 20120606, end: 20130117
  2. DEXAMETHASONE [Concomitant]
     Indication: PROPHYLAXIS OF NAUSEA AND VOMITING
     Dosage: 8 MG, UNK
     Dates: start: 20120704, end: 20121004
  3. NAVELBINE [Concomitant]
     Dosage: 50 MG, QWK
     Dates: start: 20120704, end: 20121004

REACTIONS (7)
  - Impaired healing [Not Recovered/Not Resolved]
  - Tooth disorder [Unknown]
  - Maxillofacial operation [Unknown]
  - Oral surgery [Unknown]
  - Osteonecrosis of jaw [Unknown]
  - Gingival inflammation [Unknown]
  - Pain in jaw [Unknown]
